FAERS Safety Report 12986165 (Version 1)
Quarter: 2016Q4

REPORT INFORMATION
  Report Type: Spontaneous
  Country: US (occurrence: US)
  Receive Date: 20161130
  Receipt Date: 20161130
  Transmission Date: 20170207
  Serious: No
  Sender: FDA-Public Use
  Company Number: US-MIKART, INC.-1060222

PATIENT
  Sex: Male

DRUGS (2)
  1. TORADOL [Concomitant]
     Active Substance: KETOROLAC TROMETHAMINE
  2. CHLORZOXAZONE. [Suspect]
     Active Substance: CHLORZOXAZONE
     Indication: RESTLESS LEGS SYNDROME
     Route: 048
     Dates: start: 20160216, end: 20160223

REACTIONS (4)
  - Drug ineffective [Unknown]
  - Pruritus [Unknown]
  - Diarrhoea [Unknown]
  - Drug ineffective [Unknown]

NARRATIVE: CASE EVENT DATE: 20160219
